FAERS Safety Report 19748312 (Version 1)
Quarter: 2021Q3

REPORT INFORMATION
  Report Type: Report from Study
  Country: US (occurrence: US)
  Receive Date: 20210825
  Receipt Date: 20210825
  Transmission Date: 20211014
  Serious: Yes (Hospitalization)
  Sender: FDA-Public Use
  Company Number: US-JNJFOC-20210845581

PATIENT
  Age: 46 Year
  Sex: Female
  Weight: 102.7 kg

DRUGS (3)
  1. SELEXIPAG [Suspect]
     Active Substance: SELEXIPAG
     Indication: PULMONARY HYPERTENSION
     Route: 048
  2. MACITENTAN [Suspect]
     Active Substance: MACITENTAN
     Indication: PULMONARY HYPERTENSION
     Route: 048
  3. SILDENAFIL CITRATE. [Concomitant]
     Active Substance: SILDENAFIL CITRATE

REACTIONS (4)
  - Anaesthetic complication [Unknown]
  - Cardiac disorder [Unknown]
  - Pneumothorax [Unknown]
  - Rotator cuff repair [Unknown]

NARRATIVE: CASE EVENT DATE: 20210727
